FAERS Safety Report 9107097 (Version 1)
Quarter: 2013Q1

REPORT INFORMATION
  Report Type: Spontaneous
  Country: CH (occurrence: CH)
  Receive Date: 20130221
  Receipt Date: 20130221
  Transmission Date: 20140127
  Serious: Yes (Hospitalization)
  Sender: FDA-Public Use
  Company Number: CH-BAYER-2013-018881

PATIENT
  Age: 80 Year
  Sex: Female
  Weight: 72 kg

DRUGS (8)
  1. ASPIRIN CARDIO [Suspect]
     Indication: ESSENTIAL HYPERTENSION
     Dosage: 100 MG, QD
     Route: 048
  2. IBUPROFEN [Interacting]
     Indication: BACK PAIN
     Dosage: 200 MG, TID
     Route: 048
     Dates: end: 20110503
  3. DIOVAN [Concomitant]
     Indication: ESSENTIAL HYPERTENSION
     Dosage: 40 MG, QD
     Route: 048
  4. STILNOX [Concomitant]
     Indication: SLEEP DISORDER
     Dosage: 10 MG, QD
     Route: 048
  5. DAFLON [DIOSMIN] [Concomitant]
     Indication: VENOUS INSUFFICIENCY
     Dosage: 500 MG, BID
     Route: 048
  6. PANTO [PANTOPRAZOLE SODIUM] [Concomitant]
     Indication: DYSPEPSIA
     Dosage: 40 MG, QD
     Route: 048
  7. BIOFLORIN [Concomitant]
     Indication: DIVERTICULUM
     Dosage: UNK
     Route: 048
     Dates: start: 20110419, end: 20110503
  8. LOPERAMIDE [Concomitant]
     Indication: DIARRHOEA
     Dosage: 2 MG, TID
     Route: 048
     Dates: start: 20110419, end: 20110503

REACTIONS (1)
  - Colitis [Recovered/Resolved]
